FAERS Safety Report 7744574-1 (Version None)
Quarter: 2011Q3

REPORT INFORMATION
  Report Type: 
  Country: None (occurrence: None)
  Receive Date: 20110912
  Receipt Date: 20110908
  Transmission Date: 20111222
  Serious: Yes (Hospitalization)
  Sender: FDA-Public Use
  Company Number: BE-PFIZER INC-2011139602

PATIENT
  Age: 77 Year
  Sex: Female
  Weight: 40 kg

DRUGS (6)
  1. INDERAL LA [Concomitant]
     Indication: HYPERTENSION
     Dosage: 80 MG, 1X/DAY
     Route: 048
     Dates: start: 20100101
  2. ZOLPIDEM [Concomitant]
     Dosage: 10 MG, 1X/DAY
     Route: 048
  3. RANITIDINE [Concomitant]
     Dosage: 300 MG, 1X/DAY
     Route: 048
  4. LITICAN [Concomitant]
     Dosage: UNK
  5. SUNITINIB MALATE [Suspect]
     Indication: OESOPHAGEAL CARCINOMA
     Dosage: 50 MG, 1X/DAY
     Route: 048
     Dates: start: 20110530, end: 20110620
  6. SUNITINIB MALATE [Suspect]
     Dosage: 25 MG, 1X/DAY
     Dates: start: 20110711

REACTIONS (1)
  - OESOPHAGEAL ULCER HAEMORRHAGE [None]
